FAERS Safety Report 12364467 (Version 1)
Quarter: 2016Q2

REPORT INFORMATION
  Report Type: Spontaneous
  Country: US (occurrence: US)
  Receive Date: 20160512
  Receipt Date: 20160512
  Transmission Date: 20160815
  Serious: No
  Sender: FDA-Public Use
  Company Number: GXBR2016US001120

PATIENT
  Sex: Female
  Weight: 99.77 kg

DRUGS (1)
  1. ATENOLOL TABLETS USP [Suspect]
     Active Substance: ATENOLOL
     Indication: BLOOD PRESSURE MEASUREMENT
     Dosage: 25 MG, QD (USED FOR 2 WEEKS)
     Route: 048
     Dates: start: 201602

REACTIONS (3)
  - Joint swelling [Recovered/Resolved]
  - Insomnia [Recovered/Resolved]
  - Arthralgia [Recovering/Resolving]
